FAERS Safety Report 7537908-4 (Version None)
Quarter: 2011Q2

REPORT INFORMATION
  Report Type: 
  Country: None (occurrence: None)
  Receive Date: 20110609
  Receipt Date: 20110529
  Transmission Date: 20111010
  Serious: Yes (Other)
  Sender: FDA-Public Use
  Company Number: US-BAYER-2011-047403

PATIENT
  Sex: Female

DRUGS (3)
  1. TYLENOL-500 [Concomitant]
     Indication: NEURALGIA
  2. ADVIL LIQUI-GELS [Concomitant]
     Indication: NEURALGIA
  3. ALEVE (CAPLET) [Suspect]
     Indication: NEURALGIA
     Dosage: UNK
     Route: 048
     Dates: start: 20090101

REACTIONS (1)
  - DRUG DEPENDENCE [None]
